FAERS Safety Report 12144012 (Version 2)
Quarter: 2016Q2

REPORT INFORMATION
  Report Type: Spontaneous
  Country: US (occurrence: US)
  Receive Date: 20160304
  Receipt Date: 20160415
  Transmission Date: 20160815
  Serious: No
  Sender: FDA-Public Use
  Company Number: US-009507513-1602USA012897

PATIENT
  Age: 26 Year
  Sex: Female
  Weight: 112.47 kg

DRUGS (1)
  1. NEXPLANON [Suspect]
     Active Substance: ETONOGESTREL
     Indication: CONTRACEPTION
     Dosage: 68 MG (1 ROD), FREQUENCY: NOT REPORTED
     Route: 058
     Dates: start: 201211

REACTIONS (6)
  - Device difficult to use [Not Recovered/Not Resolved]
  - General anaesthesia [Unknown]
  - Incorrect drug administration duration [Unknown]
  - Device breakage [Not Recovered/Not Resolved]
  - Device expulsion [Unknown]
  - Device difficult to use [Not Recovered/Not Resolved]

NARRATIVE: CASE EVENT DATE: 201511
